FAERS Safety Report 5118944-4 (Version None)
Quarter: 2006Q3

REPORT INFORMATION
  Report Type: 
  Country: None (occurrence: None)
  Receive Date: 20060927
  Receipt Date: 20060919
  Transmission Date: 20061208
  Serious: Yes (Other)
  Sender: FDA-Public Use
  Company Number: 230071

PATIENT
  Weight: 104.3 kg

DRUGS (7)
  1. XOLAIR [Suspect]
     Indication: ASTHMA
     Dosage: Q2W,
     Dates: start: 20060101
  2. LISINOPRIL [Concomitant]
  3. ALBUTEROL (ALBUTEROL/ALBUTEROL SULFATE) [Concomitant]
  4. SINGULAIR [Concomitant]
  5. QVAR 40 [Concomitant]
  6. SEREVENT [Concomitant]
  7. CORTICOSTEROIDS (CORTICOSTEROID NOS) [Concomitant]

REACTIONS (2)
  - ARTHRALGIA [None]
  - PERIPHERAL COLDNESS [None]
